FAERS Safety Report 25229489 (Version 1)
Quarter: 2025Q2

REPORT INFORMATION
  Report Type: Spontaneous
  Country: US (occurrence: US)
  Receive Date: 20250423
  Receipt Date: 20250423
  Transmission Date: 20250716
  Serious: Yes (Other)
  Sender: Vantive US Healthcare
  Company Number: US-VANTIVE-2025VAN001833

PATIENT
  Sex: Female
  Weight: 86 kg

DRUGS (1)
  1. EXTRANEAL [Suspect]
     Active Substance: CALCIUM CHLORIDE\ICODEXTRIN\MAGNESIUM CHLORIDE\SODIUM CHLORIDE\SODIUM LACTATE
     Route: 033

REACTIONS (4)
  - Peritonitis bacterial [Unknown]
  - Peritoneal cloudy effluent [Unknown]
  - Abdominal pain [Unknown]
  - Peritoneal dialysis complication [Unknown]
